FAERS Safety Report 5298666-X (Version None)
Quarter: 2007Q2

REPORT INFORMATION
  Report Type: 
  Country: None (occurrence: None)
  Receive Date: 20070409
  Receipt Date: 20070328
  Transmission Date: 20071010
  Serious: Yes (Hospitalization)
  Sender: FDA-Public Use
  Company Number: 237005

PATIENT
  Age: 54 Year
  Sex: Male

DRUGS (4)
  1. AVASTIN [Suspect]
     Indication: ADENOCARCINOMA
     Dosage: 10 MG/KG, INTRAVENOUS
     Route: 042
     Dates: start: 20061014, end: 20061111
  2. AVASTIN [Suspect]
     Indication: PANCREATIC CARCINOMA
     Dosage: 10 MG/KG, INTRAVENOUS
     Route: 042
     Dates: start: 20061014, end: 20061111
  3. GEMCITABINE [Suspect]
     Indication: ADENOCARCINOMA
     Dosage: 400 MG/M2, INTRAVENOUS
     Route: 042
     Dates: start: 20061014, end: 20061118
  4. GEMCITABINE [Suspect]
     Indication: PANCREATIC CARCINOMA
     Dosage: 400 MG/M2, INTRAVENOUS
     Route: 042
     Dates: start: 20061014, end: 20061118

REACTIONS (8)
  - CATHETER RELATED COMPLICATION [None]
  - COMPUTERISED TOMOGRAM ABNORMAL [None]
  - DEEP VEIN THROMBOSIS [None]
  - MESENTERIC OCCLUSION [None]
  - PANCREATICODUODENECTOMY [None]
  - PORTAL VEIN OCCLUSION [None]
  - RESPIRATORY FAILURE [None]
  - VASCULAR PSEUDOANEURYSM RUPTURED [None]
